FAERS Safety Report 14773839 (Version 1)
Quarter: 2018Q2

REPORT INFORMATION
  Report Type: Spontaneous
  Country: US (occurrence: US)
  Receive Date: 20180418
  Receipt Date: 20180418
  Transmission Date: 20180711
  Serious: No
  Sender: FDA-Public Use
  Company Number: US-VERTEX PHARMACEUTICALS-2018-002523

PATIENT
  Sex: Male

DRUGS (8)
  1. PARI [Concomitant]
  2. VORTEX [Concomitant]
     Active Substance: SODIUM FLUORIDE
  3. LEXAPRO [Concomitant]
     Active Substance: ESCITALOPRAM OXALATE
  4. CREON [Concomitant]
     Active Substance: PANCRELIPASE AMYLASE\PANCRELIPASE LIPASE\PANCRELIPASE PROTEASE
  5. LEVAQUIN [Concomitant]
     Active Substance: LEVOFLOXACIN
  6. KALYDECO [Suspect]
     Active Substance: IVACAFTOR
     Indication: CYSTIC FIBROSIS
     Dosage: 150 MG, BID
     Route: 048
     Dates: start: 20151120
  7. TESTOSTERONE. [Concomitant]
     Active Substance: TESTOSTERONE
  8. ANDROGEL [Concomitant]
     Active Substance: TESTOSTERONE

REACTIONS (2)
  - Respiratory disorder [Not Recovered/Not Resolved]
  - Seasonal allergy [Not Recovered/Not Resolved]

NARRATIVE: CASE EVENT DATE: 2018
